FAERS Safety Report 9818818 (Version 2)
Quarter: 2014Q1

REPORT INFORMATION
  Report Type: Spontaneous
  Country: US (occurrence: US)
  Receive Date: 20140115
  Receipt Date: 20140121
  Transmission Date: 20141002
  Serious: Yes (Death)
  Sender: FDA-Public Use
  Company Number: US-BAYER-2014-006867

PATIENT
  Sex: Male

DRUGS (2)
  1. CIPRO [Suspect]
  2. OFLOXACIN [Suspect]

REACTIONS (1)
  - Adverse drug reaction [Fatal]
